FAERS Safety Report 9794350 (Version 2)
Quarter: 2014Q1

REPORT INFORMATION
  Report Type: Spontaneous
  Country: BE (occurrence: BE)
  Receive Date: 20140102
  Receipt Date: 20140102
  Transmission Date: 20141002
  Serious: Yes (Other)
  Sender: FDA-Public Use
  Company Number: PHHY2013BE139416

PATIENT
  Age: 35 Year
  Sex: Male

DRUGS (15)
  1. EXJADE [Suspect]
     Indication: THALASSAEMIA BETA
     Dosage: 500 MG, BID
     Dates: start: 200710, end: 200801
  2. EXJADE [Suspect]
     Dosage: 500 MG, TID
     Dates: start: 200809, end: 201101
  3. EXJADE [Suspect]
     Dosage: UNK UKN, UNK
     Dates: start: 201202
  4. EXJADE [Suspect]
     Dosage: 500 MG, QD
     Dates: start: 20130702, end: 20130715
  5. EXJADE [Suspect]
     Dosage: 500 MG, BID
     Dates: start: 20130716, end: 20130812
  6. EXJADE [Suspect]
     Dosage: 500 MG, TID
     Dates: start: 20130813, end: 20130827
  7. DESFERAL [Suspect]
     Indication: IRON OVERLOAD
     Dosage: UNK UKN, UNK
     Route: 042
     Dates: end: 200501
  8. DESFERAL [Suspect]
     Dosage: WITH TRANSFUSION
     Dates: start: 200509
  9. DESFERAL [Suspect]
     Dosage: UNK UKN, UNK
     Route: 042
     Dates: start: 201003, end: 201003
  10. DESFERAL [Suspect]
     Dosage: UNK UKN, UNK
     Route: 058
     Dates: start: 201003
  11. DESFERAL [Suspect]
     Dosage: UNK UKN, UNK
     Route: 042
     Dates: start: 201101, end: 201102
  12. DESFERAL [Suspect]
     Dosage: UNK UKN, UNK
     Route: 058
     Dates: start: 201102
  13. DESFERAL [Suspect]
     Dosage: UNK UKN, UNK
     Route: 042
     Dates: start: 201202, end: 201202
  14. DESFERAL [Suspect]
     Dosage: UNK UKN, UNK
     Route: 058
     Dates: start: 201202
  15. DESFERAL [Suspect]
     Dosage: 1500 MG, DAILY
     Route: 058
     Dates: start: 20130827

REACTIONS (5)
  - Left ventricular hypertrophy [Unknown]
  - Skin lesion [Recovering/Resolving]
  - Splenomegaly [Unknown]
  - Rash [Not Recovered/Not Resolved]
  - Drug ineffective [Not Recovered/Not Resolved]
